FAERS Safety Report 24393226 (Version 1)
Quarter: 2024Q4

REPORT INFORMATION
  Report Type: Spontaneous
  Country: US (occurrence: None)
  Receive Date: 20241003
  Receipt Date: 20241003
  Transmission Date: 20250115
  Serious: Yes (Hospitalization)
  Sender: Public
  Company Number: None

PATIENT
  Age: 57 Year
  Sex: Male

DRUGS (11)
  1. CAPECITABINE [Suspect]
     Active Substance: CAPECITABINE
     Indication: Colon cancer
     Dosage: OTHER FREQUENCY : BID DAILY FOR 2 WEEKS BY 1 WK OFF. 21 DAY CYCLE;?
     Route: 048
     Dates: start: 20240606
  2. ACETAMIN [Concomitant]
  3. CENTRUM [Concomitant]
  4. LOSARTAN POTASSIUM [Concomitant]
     Active Substance: LOSARTAN POTASSIUM
  5. METOPROLOL TARTRATE [Concomitant]
     Active Substance: METOPROLOL TARTRATE
  6. MIRALAX [Concomitant]
     Active Substance: POLYETHYLENE GLYCOL 3350
  7. MULTIPLE VIT [Concomitant]
  8. PANTROPRAZOLE [Concomitant]
  9. SILDENAFIL [Concomitant]
  10. TADALAFIL [Concomitant]
  11. TURMERIC [Concomitant]

REACTIONS (5)
  - Diarrhoea [None]
  - Nausea [None]
  - Vomiting [None]
  - Illness [None]
  - Surgery [None]

NARRATIVE: CASE EVENT DATE: 20240901
